FAERS Safety Report 7901985-9 (Version None)
Quarter: 2011Q4

REPORT INFORMATION
  Report Type: 
  Country: None (occurrence: None)
  Receive Date: 20111108
  Receipt Date: 20111026
  Transmission Date: 20120403
  Serious: Yes (Congenital Anomaly)
  Sender: FDA-Public Use
  Company Number: US-GLAXOSMITHKLINE-A0881195A

PATIENT
  Sex: Male
  Weight: 3.3 kg

DRUGS (6)
  1. ZITHROMAX [Concomitant]
  2. FLOVENT [Concomitant]
  3. PROZAC [Concomitant]
     Indication: ANXIETY
     Dosage: 10MG PER DAY
     Route: 064
     Dates: start: 20070104, end: 20070129
  4. ALBUTEROL [Concomitant]
  5. PAXIL [Suspect]
     Indication: ANXIETY
     Dosage: 10MG PER DAY
     Route: 064
     Dates: start: 20030101, end: 20070104
  6. VITAMIN AND MINERAL PRENATAL SUPPLEMENT W/ FOLIC ACID CAP [Concomitant]

REACTIONS (2)
  - TALIPES [None]
  - FOETAL EXPOSURE DURING PREGNANCY [None]
